FAERS Safety Report 6453892-9 (Version None)
Quarter: 2009Q4

REPORT INFORMATION
  Report Type: 
  Country: None (occurrence: None)
  Receive Date: 20091124
  Receipt Date: 20091116
  Transmission Date: 20100525
  Serious: Yes (Hospitalization)
  Sender: FDA-Public Use
  Company Number: DE-ASTRAZENECA-2009SE27290

PATIENT
  Age: 47 Year
  Sex: Female

DRUGS (9)
  1. SEROQUEL [Suspect]
     Indication: SCHIZOAFFECTIVE DISORDER DEPRESSIVE TYPE
     Route: 048
     Dates: start: 20090420, end: 20090506
  2. SEROQUEL [Suspect]
     Route: 048
     Dates: start: 20090507, end: 20090510
  3. SEROQUEL [Suspect]
     Route: 048
     Dates: start: 20090511, end: 20090513
  4. SEROQUEL [Suspect]
     Route: 048
     Dates: start: 20090514, end: 20090517
  5. SEROQUEL [Suspect]
     Route: 048
     Dates: start: 20090518, end: 20090519
  6. SEROQUEL [Suspect]
     Route: 048
     Dates: start: 20090520, end: 20090520
  7. LORAZEPAM [Concomitant]
     Route: 048
     Dates: start: 20090521, end: 20090525
  8. LORAZEPAM [Concomitant]
     Route: 048
     Dates: start: 20090526, end: 20090527
  9. LORAZEPAM [Concomitant]
     Route: 048
     Dates: start: 20090528, end: 20090601

REACTIONS (1)
  - NEUTROPENIA [None]
